FAERS Safety Report 14252783 (Version 1)
Quarter: 2017Q4

REPORT INFORMATION
  Report Type: Report from Study
  Country: NL (occurrence: NL)
  Receive Date: 20171206
  Receipt Date: 20171206
  Transmission Date: 20180321
  Serious: Yes (Hospitalization, Other)
  Sender: FDA-Public Use
  Company Number: NL-AMGEN-NLDSL2017180055

PATIENT
  Age: 83 Year
  Sex: Male

DRUGS (1)
  1. ARANESP [Suspect]
     Active Substance: DARBEPOETIN ALFA
     Indication: MYELODYSPLASTIC SYNDROME
     Dosage: 300MUG (500MUG/ML, 0.6ML), Q3WK
     Route: 058

REACTIONS (3)
  - Haemoglobin increased [Unknown]
  - Unevaluable event [Unknown]
  - Off label use [Unknown]

NARRATIVE: CASE EVENT DATE: 20171129
